FAERS Safety Report 7968803-4 (Version None)
Quarter: 2011Q4

REPORT INFORMATION
  Report Type: 
  Country: None (occurrence: None)
  Receive Date: 20111208
  Receipt Date: 20111123
  Transmission Date: 20120403
  Serious: Yes (Life-Threatening, Hospitalization)
  Sender: FDA-Public Use
  Company Number: 20110823

PATIENT
  Age: 28 Year
  Sex: Female
  Weight: 54 kg

DRUGS (1)
  1. VENOFER [Suspect]
     Indication: ANAEMIA
     Dosage: ISOTONIC SOLU. INTAVENOUS DRIP
     Route: 041

REACTIONS (2)
  - ANAPHYLACTIC SHOCK [None]
  - PULMONARY OEDEMA [None]
